FAERS Safety Report 4371813-X (Version None)
Quarter: 2004Q2

REPORT INFORMATION
  Report Type: 
  Country: None (occurrence: None)
  Receive Date: 20040601
  Receipt Date: 20040517
  Transmission Date: 20050107
  Serious: Yes (Hospitalization)
  Sender: FDA-Public Use
  Company Number: 2004-BP-03838BP

PATIENT
  Sex: Male

DRUGS (7)
  1. SPIRIVA [Suspect]
     Indication: CHRONIC OBSTRUCTIVE AIRWAYS DISEASE
     Dosage: 18 MCG (18 MCG, 18 MCG DAILY), IH
     Route: 055
  2. THEOPHYLLINE [Concomitant]
  3. COMBIVENT [Concomitant]
  4. PREDNISONE TAB [Concomitant]
  5. FORADIL [Concomitant]
  6. FLOVENT [Concomitant]
  7. OXYGEN (OXYGEN) [Concomitant]

REACTIONS (1)
  - CHRONIC OBSTRUCTIVE AIRWAYS DISEASE EXACERBATED [None]
